FAERS Safety Report 6717596-7 (Version None)
Quarter: 2010Q2

REPORT INFORMATION
  Report Type: 
  Country: None (occurrence: None)
  Receive Date: 20100510
  Receipt Date: 20100428
  Transmission Date: 20101027
  Serious: Yes (Other)
  Sender: FDA-Public Use
  Company Number: US-SANOFI-AVENTIS-2010SA025139

PATIENT
  Age: 76 Year
  Sex: Male

DRUGS (3)
  1. PLAVIX [Suspect]
     Indication: STENT PLACEMENT
     Route: 048
     Dates: start: 20080601
  2. ASPIRIN [Suspect]
     Indication: STENT PLACEMENT
     Route: 048
     Dates: start: 20080601
  3. NEXIUM /UNK/ [Suspect]
     Route: 048
     Dates: end: 20100201

REACTIONS (2)
  - ARTERIAL OCCLUSIVE DISEASE [None]
  - GASTROOESOPHAGEAL REFLUX DISEASE [None]
